FAERS Safety Report 6753028-0 (Version None)
Quarter: 2010Q2

REPORT INFORMATION
  Report Type: 
  Country: None (occurrence: None)
  Receive Date: 20100602
  Receipt Date: 20100602
  Transmission Date: 20101027
  Serious: Yes (Death)
  Sender: FDA-Public Use
  Company Number: None

PATIENT
  Sex: Female
  Weight: 60.782 kg

DRUGS (2)
  1. NEXIUM [Suspect]
     Dosage: 1 A DAY
  2. ACTOS [Suspect]
     Indication: DIABETES MELLITUS
     Dosage: 1 A DAY

REACTIONS (1)
  - MYOCARDIAL INFARCTION [None]
